FAERS Safety Report 4821189-6 (Version None)
Quarter: 2005Q4

REPORT INFORMATION
  Report Type: 
  Country: None (occurrence: None)
  Receive Date: 20051103
  Receipt Date: 20051021
  Transmission Date: 20060501
  Serious: Yes (Other)
  Sender: FDA-Public Use
  Company Number: 2005145577

PATIENT
  Sex: Male
  Weight: 62.5964 kg

DRUGS (8)
  1. LIPITOR [Suspect]
     Indication: BLOOD CHOLESTEROL INCREASED
     Dosage: 20 MG (20 MG, 1 IN 1 D)
  2. DILANTIN [Suspect]
     Indication: CONVULSION
     Dates: start: 20020101
  3. MORPHINE [Concomitant]
  4. LORTAB [Concomitant]
  5. XANAX [Concomitant]
  6. SEROQUEL (PROMETHAZINE) [Concomitant]
  7. ZYPREXA [Concomitant]
  8. TIAZAC [Concomitant]

REACTIONS (14)
  - BARRETT'S OESOPHAGUS [None]
  - CEREBROVASCULAR ACCIDENT [None]
  - CONVULSION [None]
  - DIABETES MELLITUS [None]
  - DIZZINESS [None]
  - DYSPEPSIA [None]
  - HEPATOCELLULAR DAMAGE [None]
  - LOW DENSITY LIPOPROTEIN INCREASED [None]
  - MUSCLE SPASMS [None]
  - MYALGIA [None]
  - ROAD TRAFFIC ACCIDENT [None]
  - STAPHYLOCOCCAL INFECTION [None]
  - SYNCOPE [None]
  - VOMITING [None]
